FAERS Safety Report 25855822 (Version 1)
Quarter: 2025Q3

REPORT INFORMATION
  Report Type: Spontaneous
  Country: US (occurrence: US)
  Receive Date: 20250928
  Receipt Date: 20250928
  Transmission Date: 20251020
  Serious: No
  Sender: ELI LILLY AND COMPANY
  Company Number: US-ELI_LILLY_AND_COMPANY-US202509021375

PATIENT
  Age: 43 Year

DRUGS (1)
  1. ZEPBOUND [Suspect]
     Active Substance: TIRZEPATIDE
     Indication: Weight control
     Route: 058
     Dates: start: 202509

REACTIONS (3)
  - Dyspnoea [Unknown]
  - Hunger [Unknown]
  - Nausea [Unknown]

NARRATIVE: CASE EVENT DATE: 20250901
